FAERS Safety Report 18204410 (Version 1)
Quarter: 2020Q3

REPORT INFORMATION
  Report Type: Spontaneous
  Country: FR (occurrence: FR)
  Receive Date: 20200828
  Receipt Date: 20200828
  Transmission Date: 20201103
  Serious: Yes (Other)
  Sender: FDA-Public Use
  Company Number: FR-AMGEN-FRASP2020136857

PATIENT
  Age: 19 Year
  Sex: Female
  Weight: 80 kg

DRUGS (2)
  1. DOXYCYCLINE. [Suspect]
     Active Substance: DOXYCYCLINE
     Indication: DERMATOSIS
     Dosage: 200 MILLIGRAM, QD
     Route: 048
     Dates: start: 201909
  2. ADALIMUMAB [Suspect]
     Active Substance: ADALIMUMAB
     Indication: DERMATOSIS
     Dosage: 80 MILLIGRAM, Q2WK
     Route: 058
     Dates: start: 20200219, end: 20200610

REACTIONS (1)
  - Thrombocytopenia [Unknown]

NARRATIVE: CASE EVENT DATE: 20200527
